FAERS Safety Report 19948611 (Version 1)
Quarter: 2021Q4

REPORT INFORMATION
  Report Type: Spontaneous
  Country: FR (occurrence: FR)
  Receive Date: 20211013
  Receipt Date: 20211013
  Transmission Date: 20220303
  Serious: Yes (Hospitalization)
  Sender: FDA-Public Use
  Company Number: 2021A762090

PATIENT
  Sex: Female
  Weight: 46 kg

DRUGS (3)
  1. LYNPARZA [Suspect]
     Active Substance: OLAPARIB
     Indication: COVID-19 immunisation
     Route: 048
     Dates: start: 202003, end: 202103
  2. LYNPARZA [Suspect]
     Active Substance: OLAPARIB
     Indication: COVID-19 immunisation
     Route: 048
     Dates: start: 20200217, end: 202003
  3. LYNPARZA [Suspect]
     Active Substance: OLAPARIB
     Indication: COVID-19 immunisation
     Route: 048
     Dates: start: 20191226, end: 20200216

REACTIONS (1)
  - Myelodysplastic syndrome [Not Recovered/Not Resolved]

NARRATIVE: CASE EVENT DATE: 20210503
